FAERS Safety Report 7701191-7 (Version None)
Quarter: 2011Q3

REPORT INFORMATION
  Report Type: 
  Country: None (occurrence: None)
  Receive Date: 20110822
  Receipt Date: 20110808
  Transmission Date: 20111222
  Serious: Yes (Congenital Anomaly)
  Sender: FDA-Public Use
  Company Number: US-GLAXOSMITHKLINE-A0871928A

PATIENT
  Sex: Male

DRUGS (2)
  1. PAXIL CR [Suspect]
     Indication: PRODUCT USED FOR UNKNOWN INDICATION
     Route: 064
  2. PAXIL [Suspect]
     Indication: PRODUCT USED FOR UNKNOWN INDICATION
     Route: 064
     Dates: start: 20010101, end: 20050101

REACTIONS (7)
  - MATERNAL EXPOSURE DURING PREGNANCY [None]
  - HAND DEFORMITY [None]
  - ATRIAL SEPTAL DEFECT [None]
  - CONGENITAL HAND MALFORMATION [None]
  - CARDIAC SEPTAL DEFECT [None]
  - HOLT-ORAM SYNDROME [None]
  - PATENT DUCTUS ARTERIOSUS [None]
